FAERS Safety Report 8573864-8 (Version None)
Quarter: 2012Q3

REPORT INFORMATION
  Report Type: 
  Country: None (occurrence: None)
  Receive Date: 20120806
  Receipt Date: 20111229
  Transmission Date: 20120928
  Serious: No
  Sender: FDA-Public Use
  Company Number: US-GLAXOSMITHKLINE-A0959620A

PATIENT
  Age: 57 Year
  Sex: Female

DRUGS (4)
  1. FLUTICASONE PROPIONATE [Suspect]
     Indication: COUGH
     Dosage: 1PUFF PER DAY
     Route: 055
  2. FLUTICASONE PROPIONATE [Suspect]
     Indication: BRONCHITIS
     Dosage: 1PUFF TWICE PER DAY
     Route: 055
     Dates: start: 20111116
  3. COMBIVENT [Concomitant]
  4. SPIRIVA [Concomitant]

REACTIONS (2)
  - RASH [None]
  - APHONIA [None]
